FAERS Safety Report 13007029 (Version 2)
Quarter: 2016Q4

REPORT INFORMATION
  Report Type: Spontaneous
  Country: US (occurrence: US)
  Receive Date: 20161207
  Receipt Date: 20161215
  Transmission Date: 20170207
  Serious: Yes (Other)
  Sender: FDA-Public Use
  Company Number: US-TEVA-694115USA

PATIENT
  Age: 84 Year
  Sex: Female
  Weight: 54.48 kg

DRUGS (3)
  1. MEGACE ES [Concomitant]
     Active Substance: MEGESTROL ACETATE
     Dosage: EVERY OTHER DAY
  2. XGEVA [Concomitant]
     Active Substance: DENOSUMAB
     Dosage: MONTHLY
  3. FENTANYL. [Suspect]
     Active Substance: FENTANYL
     Indication: CANCER PAIN
     Dosage: 25MCG 5, ONCE EVERY THREE DAYS
     Route: 062
     Dates: start: 20140814

REACTIONS (4)
  - Pruritus [Not Recovered/Not Resolved]
  - Drug ineffective [Unknown]
  - Papule [Not Recovered/Not Resolved]
  - Drug dependence [Not Recovered/Not Resolved]

NARRATIVE: CASE EVENT DATE: 2016
